FAERS Safety Report 25269592 (Version 1)
Quarter: 2025Q2

REPORT INFORMATION
  Report Type: Spontaneous
  Country: CN (occurrence: CN)
  Receive Date: 20250505
  Receipt Date: 20250505
  Transmission Date: 20250717
  Serious: Yes (Hospitalization)
  Sender: FRESENIUS KABI
  Company Number: CN-FreseniusKabi-FK202506252

PATIENT
  Age: 70 Year
  Sex: Female
  Weight: 49 kg

DRUGS (1)
  1. EGG PHOSPHOLIPIDS\GLYCERIN\MEDIUM-CHAIN TRIGLYCERIDES\SOYBEAN OIL [Suspect]
     Active Substance: EGG PHOSPHOLIPIDS\GLYCERIN\MEDIUM-CHAIN TRIGLYCERIDES\SOYBEAN OIL
     Indication: Malnutrition
     Dosage: AT 16:30, WHEN MEDICATION OF 20 ML WAS GIVEN, THE PATIENT DEVELOPED FLUSHED SKIN ALL OVER THE BODY A
     Route: 041
     Dates: start: 20250419, end: 20250419

REACTIONS (4)
  - Flushing [Recovering/Resolving]
  - Pruritus [Recovering/Resolving]
  - Blood pressure decreased [Recovering/Resolving]
  - Cold sweat [Recovering/Resolving]

NARRATIVE: CASE EVENT DATE: 20250419
